FAERS Safety Report 4375229-1 (Version None)
Quarter: 2004Q2

REPORT INFORMATION
  Report Type: 
  Country: None (occurrence: None)
  Receive Date: 20040610
  Receipt Date: 20031117
  Transmission Date: 20050107
  Serious: Yes (Hospitalization)
  Sender: FDA-Public Use
  Company Number: 2003GB03111

PATIENT
  Age: 83 Year

DRUGS (10)
  1. CRESTOR [Suspect]
     Indication: HYPERLIPIDAEMIA
     Dosage: 80 MG PO
     Route: 048
     Dates: start: 20030901, end: 20031105
  2. PRAVASTATIN [Concomitant]
  3. BENDROFLUAZIDE [Concomitant]
  4. ASPIRIN [Concomitant]
  5. ATROVENT [Concomitant]
  6. LISINOPRIL [Concomitant]
  7. XALATAN [Concomitant]
  8. ACETAMINOPHEN [Concomitant]
  9. BECLOMETHASONE DIPROPIONATE [Concomitant]
  10. DIPYRIDAMOLE [Concomitant]

REACTIONS (1)
  - RHABDOMYOLYSIS [None]
